FAERS Safety Report 7070060-0 (Version None)
Quarter: 2010Q4

REPORT INFORMATION
  Report Type: 
  Country: None (occurrence: None)
  Receive Date: 20101028
  Receipt Date: 20100813
  Transmission Date: 20110411
  Serious: No
  Sender: FDA-Public Use
  Company Number: US-WYE-H16952310

PATIENT
  Age: 2 Year
  Sex: Male
  Weight: 14.53 kg

DRUGS (1)
  1. CHILDREN'S ADVIL [Suspect]
     Indication: PYREXIA
     Dosage: 1 TEASPOON EVERY 6 HOURS
     Route: 048
     Dates: start: 20100812

REACTIONS (1)
  - DRUG INEFFECTIVE [None]
